FAERS Safety Report 7404396-8 (Version None)
Quarter: 2011Q2

REPORT INFORMATION
  Report Type: 
  Country: None (occurrence: None)
  Receive Date: 20110408
  Receipt Date: 20110406
  Transmission Date: 20111010
  Serious: Yes (Other)
  Sender: FDA-Public Use
  Company Number: US-AMGEN-USASP2011012255

PATIENT
  Sex: Female
  Weight: 76.41 kg

DRUGS (3)
  1. NPLATE [Suspect]
     Indication: IDIOPATHIC THROMBOCYTOPENIC PURPURA
     Dosage: 750 A?G, UNK
     Dates: start: 20110104, end: 20110125
  2. IMMUNOGLOBULINS [Concomitant]
  3. NPLATE [Suspect]
     Dates: start: 20110104, end: 20110125

REACTIONS (1)
  - DRUG INEFFECTIVE [None]
